FAERS Safety Report 7352846-8 (Version None)
Quarter: 2011Q1

REPORT INFORMATION
  Report Type: 
  Country: None (occurrence: None)
  Receive Date: 20110310
  Receipt Date: 20110310
  Transmission Date: 20110831
  Serious: Yes (Death)
  Sender: FDA-Public Use
  Company Number: None

PATIENT
  Age: 85 Year
  Sex: Female
  Weight: 81.6475 kg

DRUGS (1)
  1. NITROFURANTOIN [Suspect]
     Indication: URINARY TRACT INFECTION
     Dosage: ONE CAPSULE EVERY12 HOURS PO
     Route: 048
     Dates: start: 20110131, end: 20110201

REACTIONS (6)
  - DYSPNOEA [None]
  - ASTHENIA [None]
  - SUDDEN DEATH [None]
  - PAIN IN EXTREMITY [None]
  - RESPIRATORY ARREST [None]
  - CHEST DISCOMFORT [None]
